FAERS Safety Report 24312227 (Version 1)
Quarter: 2024Q3

REPORT INFORMATION
  Report Type: Spontaneous
  Country: US (occurrence: US)
  Receive Date: 20240912
  Receipt Date: 20240912
  Transmission Date: 20241016
  Serious: No
  Sender: BAYER
  Company Number: US-BAYER-2024A129302

PATIENT

DRUGS (1)
  1. CLARITIN ALLERGY [Suspect]
     Active Substance: LORATADINE
     Indication: Multiple allergies
     Dosage: UNK

REACTIONS (1)
  - Drug ineffective [Unknown]
